FAERS Safety Report 4679561-3 (Version None)
Quarter: 2005Q2

REPORT INFORMATION
  Report Type: 
  Country: None (occurrence: None)
  Receive Date: 20050602
  Receipt Date: 20050527
  Transmission Date: 20051028
  Serious: Yes (Hospitalization)
  Sender: FDA-Public Use
  Company Number: 200511795FR

PATIENT
  Age: 14 Year
  Sex: Male
  Weight: 67 kg

DRUGS (2)
  1. FLAGYL [Suspect]
     Route: 048
     Dates: start: 20050331, end: 20050425
  2. CIPROFLOXACIN [Concomitant]
     Route: 048
     Dates: start: 20050331, end: 20050425

REACTIONS (6)
  - ABDOMINAL PAIN [None]
  - ANOREXIA [None]
  - APHTHOUS STOMATITIS [None]
  - BLOOD AMYLASE INCREASED [None]
  - LIPASE INCREASED [None]
  - PANCREATITIS [None]
